FAERS Safety Report 9557150 (Version 3)
Quarter: 2013Q4

REPORT INFORMATION
  Report Type: Report from Study
  Country: DE (occurrence: DE)
  Receive Date: 20130926
  Receipt Date: 20131001
  Transmission Date: 20140711
  Serious: Yes (Death, Hospitalization, Other)
  Sender: FDA-Public Use
  Company Number: DE-B.I. PHARMACEUTICALS,INC./RIDGEFIELD-2013-BI-19479DE

PATIENT
  Age: 60 Year
  Sex: Male
  Weight: 82 kg

DRUGS (9)
  1. AFATINIB [Suspect]
     Indication: NON-SMALL CELL LUNG CANCER
     Dosage: 70 MG
     Route: 048
     Dates: start: 201205
  2. AFATINIB [Suspect]
     Dosage: 50 MG
     Route: 048
     Dates: start: 20120501, end: 20130913
  3. FORTECORTIN [Concomitant]
     Dosage: 6 MG
     Route: 048
     Dates: end: 20130821
  4. PANTOZOL [Concomitant]
     Indication: PROPHYLAXIS
     Dosage: 80 MG
     Route: 048
  5. NOVOMINSULFON [Concomitant]
     Indication: PAIN
     Dosage: FORMULATION: LIQ DOSE PER APPLICATION 80GT DAILY DOSE 80GT
     Route: 048
     Dates: start: 20130911, end: 20130915
  6. MORPHIN [Concomitant]
     Indication: PAIN
     Dosage: 50 MG
     Route: 042
     Dates: start: 20130914, end: 20130915
  7. NAHCO3 [Concomitant]
     Indication: RENAL FAILURE
     Dosage: 100 ML
     Route: 042
     Dates: start: 20130914, end: 20130915
  8. IMMODIUM [Concomitant]
     Indication: DIARRHOEA
     Dosage: FORMULATION: PO
     Route: 048
  9. HIGH CALORIES DRINKING FOOD [Concomitant]
     Indication: DECREASED APPETITE
     Dosage: FORMULATION: PP ROUTE LIQ DOSE PER APPLICATION 3X DAILY DOSE 3X

REACTIONS (10)
  - Abdominal pain lower [Fatal]
  - Diarrhoea [Fatal]
  - Renal failure acute [Fatal]
  - Metabolic acidosis [Fatal]
  - General physical health deterioration [Unknown]
  - General physical health deterioration [Unknown]
  - Abdominal pain lower [Not Recovered/Not Resolved]
  - Decreased appetite [Not Recovered/Not Resolved]
  - General physical health deterioration [Not Recovered/Not Resolved]
  - Diarrhoea [Not Recovered/Not Resolved]
